FAERS Safety Report 4539379-9 (Version None)
Quarter: 2004Q4

REPORT INFORMATION
  Report Type: 
  Country: None (occurrence: None)
  Receive Date: 20041222
  Receipt Date: 20041213
  Transmission Date: 20050328
  Serious: Yes (Hospitalization)
  Sender: FDA-Public Use
  Company Number: 2004AP05926

PATIENT
  Age: 44 Year
  Sex: Female
  Weight: 53 kg

DRUGS (18)
  1. IRESSA [Suspect]
     Indication: LUNG ADENOCARCINOMA
     Dosage: 250 MG DAILY PO
     Route: 048
     Dates: start: 20040308, end: 20040521
  2. IRESSA [Suspect]
     Indication: NON-SMALL CELL LUNG CANCER
     Dosage: 250 MG DAILY PO
     Route: 048
     Dates: start: 20040308, end: 20040521
  3. IRESSA [Suspect]
     Indication: LUNG ADENOCARCINOMA
     Dosage: 250 MG DAILY PO
     Route: 048
     Dates: start: 20040907
  4. IRESSA [Suspect]
     Indication: NON-SMALL CELL LUNG CANCER
     Dosage: 250 MG DAILY PO
     Route: 048
     Dates: start: 20040907
  5. RADIATION THERAPY [Suspect]
     Dosage: 50 GY
     Dates: start: 20021031, end: 20021205
  6. TAGAMET [Concomitant]
  7. DEPAS [Concomitant]
  8. LAC B [Concomitant]
  9. ALLEGRA [Concomitant]
  10. RESTAMIN [Concomitant]
  11. LOPEMIN [Concomitant]
  12. NO MATCH [Concomitant]
  13. MALFA [Concomitant]
  14. ALLELOCK [Concomitant]
  15. VITAMEDIN S [Concomitant]
  16. HIRUDOID [Concomitant]
  17. GEMCITABINE [Concomitant]
  18. DOCETAXEL [Concomitant]

REACTIONS (1)
  - BRONCHOPLEURAL FISTULA [None]
